FAERS Safety Report 5515059-8 (Version None)
Quarter: 2007Q4

REPORT INFORMATION
  Report Type: 
  Country: None (occurrence: None)
  Receive Date: 20071113
  Receipt Date: 20061206
  Transmission Date: 20080405
  Serious: No
  Sender: FDA-Public Use
  Company Number: A0630644A

PATIENT
  Age: 68 Year
  Sex: Male

DRUGS (6)
  1. COREG [Suspect]
     Dosage: 12.5MG TWICE PER DAY
     Route: 048
  2. LISINOPRIL [Concomitant]
  3. FUROSEMIDE [Concomitant]
  4. WARFARIN SODIUM [Concomitant]
  5. PRILOSEC [Concomitant]
  6. UNKNOWN MEDICATION [Concomitant]
     Indication: GOUT

REACTIONS (2)
  - OEDEMA [None]
  - WEIGHT INCREASED [None]
